FAERS Safety Report 16890634 (Version 1)
Quarter: 2019Q4

REPORT INFORMATION
  Report Type: Spontaneous
  Country: US (occurrence: US)
  Receive Date: 20191005
  Receipt Date: 20191005
  Transmission Date: 20200122
  Serious: Yes (Disabling)
  Sender: FDA-Public Use
  Company Number: None

PATIENT
  Age: 46 Year
  Sex: Female
  Weight: 99 kg

DRUGS (5)
  1. NP THYROID [Suspect]
     Active Substance: LEVOTHYROXINE\LIOTHYRONINE
     Indication: AUTOIMMUNE THYROIDITIS
     Dosage: ?          QUANTITY:1 TABLET(S);90, 60, 30 MCGS?
     Route: 048
  2. PHYTOMULTI [Concomitant]
  3. ADR (ADRENAL SUPPORT) [Concomitant]
  4. TITANIUM PLATE IN CERVICAL REGION [Concomitant]
  5. ESTRADIOL PATCH .02 MG [Concomitant]

REACTIONS (5)
  - Skin irritation [None]
  - Headache [None]
  - Abdominal discomfort [None]
  - Thyroiditis [None]
  - Muscle spasms [None]

NARRATIVE: CASE EVENT DATE: 20190604
